FAERS Safety Report 9144295 (Version 3)
Quarter: 2014Q1

REPORT INFORMATION
  Report Type: Spontaneous
  Country: US (occurrence: US)
  Receive Date: 20130306
  Receipt Date: 20140227
  Transmission Date: 20141002
  Serious: No
  Sender: FDA-Public Use
  Company Number: US-TEVA-389935USA

PATIENT
  Sex: Female

DRUGS (4)
  1. COPAXONE [Suspect]
     Indication: MULTIPLE SCLEROSIS
     Dates: start: 2001, end: 20130103
  2. COPAXONE [Suspect]
     Dosage: NOT PROVIDED
  3. ZANAFLEX [Concomitant]
     Indication: MUSCLE RELAXANT THERAPY
     Dates: end: 20121003
  4. TOPAMAX [Concomitant]
     Indication: MUSCLE RELAXANT THERAPY
     Dates: end: 20121003

REACTIONS (2)
  - Pregnancy [Recovered/Resolved]
  - Exposure during breast feeding [Unknown]
